FAERS Safety Report 6853947-0 (Version None)
Quarter: 2010Q3

REPORT INFORMATION
  Report Type: 
  Country: None (occurrence: None)
  Receive Date: 20100717
  Receipt Date: 20080207
  Transmission Date: 20110219
  Serious: No
  Sender: FDA-Public Use
  Company Number: US-PFIZER INC-2007100113

PATIENT
  Sex: Female
  Weight: 73.6 kg

DRUGS (6)
  1. CHANTIX [Suspect]
     Indication: SMOKING CESSATION THERAPY
     Dates: start: 20071024
  2. XANAX [Concomitant]
  3. OXYCONTIN [Concomitant]
     Indication: PAIN
  4. VALSARTAN [Concomitant]
     Indication: HYPERTENSION
  5. SYNTHROID [Concomitant]
     Indication: THYROID DISORDER
  6. LANTUS [Concomitant]
     Indication: DIABETES MELLITUS

REACTIONS (3)
  - DRUG INEFFECTIVE [None]
  - NAUSEA [None]
  - NIGHTMARE [None]
